FAERS Safety Report 20960644 (Version 1)
Quarter: 2022Q2

REPORT INFORMATION
  Report Type: Spontaneous
  Country: US (occurrence: US)
  Receive Date: 20220615
  Receipt Date: 20220615
  Transmission Date: 20220720
  Serious: No
  Sender: FDA-Public Use
  Company Number: US-BRISTOL-MYERS SQUIBB COMPANY-2022-044779

PATIENT
  Age: 57 Year
  Sex: Male
  Weight: 139 kg

DRUGS (1)
  1. POMALYST [Suspect]
     Active Substance: POMALIDOMIDE
     Indication: Plasma cell myeloma
     Dosage: 21D ON, 7D OFF
     Route: 048
     Dates: start: 20220401, end: 20220501

REACTIONS (1)
  - White blood cell count decreased [Recovered/Resolved]
